FAERS Safety Report 17795756 (Version 1)
Quarter: 2020Q2

REPORT INFORMATION
  Report Type: Report from Study
  Country: ES (occurrence: ES)
  Receive Date: 20200516
  Receipt Date: 20200516
  Transmission Date: 20200714
  Serious: Yes (Life-Threatening, Hospitalization)
  Sender: FDA-Public Use
  Company Number: ES-ACCORD-182147

PATIENT
  Age: 73 Year
  Sex: Male

DRUGS (6)
  1. SINTROM [Interacting]
     Active Substance: ACENOCOUMAROL
     Indication: CARDIAC FLUTTER
     Dosage: STRENGTH: 1 MG TABLETS, 60 TABLETS
     Route: 048
     Dates: start: 201406, end: 20170817
  2. SERTRALINE [Suspect]
     Active Substance: SERTRALINE HYDROCHLORIDE
     Indication: PRODUCT USED FOR UNKNOWN INDICATION
     Route: 048
     Dates: start: 201407, end: 20170819
  3. ADIRO [Interacting]
     Active Substance: ASPIRIN
     Indication: PRODUCT USED FOR UNKNOWN INDICATION
     Dosage: STRENGTH: 100 MG GASTRO-RESISTANT TABLETS EFG, 30 TABLETS
     Route: 048
     Dates: start: 201406, end: 20170819
  4. RIFAXIMIN. [Concomitant]
     Active Substance: RIFAXIMIN
     Route: 048
     Dates: start: 201502, end: 20170817
  5. BISOPROLOL [Concomitant]
     Active Substance: BISOPROLOL
     Indication: CARDIAC FLUTTER
     Route: 048
     Dates: start: 201406, end: 20170819
  6. PREDNISONE. [Interacting]
     Active Substance: PREDNISONE
     Indication: PRODUCT USED FOR UNKNOWN INDICATION
     Route: 048

REACTIONS (2)
  - Lower gastrointestinal haemorrhage [Recovered/Resolved]
  - Drug interaction [Unknown]

NARRATIVE: CASE EVENT DATE: 20170816
